FAERS Safety Report 7393152-5 (Version None)
Quarter: 2011Q2

REPORT INFORMATION
  Report Type: 
  Country: None (occurrence: None)
  Receive Date: 20110404
  Receipt Date: 20110314
  Transmission Date: 20111010
  Serious: Yes (Other)
  Sender: FDA-Public Use
  Company Number: US-BAYER-201028981NA

PATIENT
  Sex: Male
  Weight: 119.73 kg

DRUGS (64)
  1. MAGNEVIST [Suspect]
     Dosage: 20 ML, ONCE
     Dates: start: 20020508, end: 20020508
  2. PLENDIL [Concomitant]
     Dosage: 5 MG, QD
     Dates: start: 20100206
  3. UNCODEABLE ^UNCLASSIFIABLE^ [Concomitant]
  4. ALLOPURINOL [Concomitant]
  5. RENACAL [Concomitant]
  6. DECADRON [Concomitant]
  7. OMNISCAN [Suspect]
     Indication: SLEEP APNOEA SYNDROME
     Dosage: UNK
     Route: 042
     Dates: start: 20001016, end: 20001016
  8. OMNISCAN [Suspect]
     Indication: HEADACHE
     Dosage: UNK
     Dates: start: 20011211, end: 20011211
  9. ANTIHYPERTENSIVES [Concomitant]
  10. LASIX [Concomitant]
     Dosage: 80 MG, QD
  11. ZAROXOLYN [Concomitant]
     Dosage: 10 MG, QD
     Dates: start: 20020206
  12. LEXAPRO [Concomitant]
  13. PHOSLO [Concomitant]
  14. POTASSIUM CHLORIDE [Concomitant]
  15. ROXIN [Concomitant]
  16. LOMOTIL [Concomitant]
  17. REGLAN [Concomitant]
  18. PROCRIT [Concomitant]
     Dosage: 400000 U, EVERY WEEK
     Route: 058
  19. PREDNISONE [Concomitant]
     Dosage: 120 MG, QD
  20. URECHOLINE [Concomitant]
  21. NASACORT AQ [Concomitant]
  22. IRON [IRON] [Concomitant]
  23. AVAPRO [Concomitant]
     Dosage: 10 MG, QD
     Dates: start: 20020206
  24. COMPAZINE [Concomitant]
     Dosage: UNK UNK, PRN
  25. GADOLINIUM IN UNSPECIFIED DRUG [Suspect]
     Indication: NUCLEAR MAGNETIC RESONANCE IMAGING BRAIN
     Dosage: UNK
     Dates: start: 20070717, end: 20070717
  26. ATENOLOL [Concomitant]
  27. ALBUTEROL [Concomitant]
  28. ZOFRAN [Concomitant]
  29. COMPAZINE [Concomitant]
  30. OMNISCAN [Suspect]
     Indication: BRAIN STEM SYNDROME
     Dosage: UNK
     Route: 042
     Dates: start: 20010227, end: 20010227
  31. OMNISCAN [Suspect]
     Dosage: UNK
     Dates: start: 20021126, end: 20021126
  32. TERAZOSIN [Concomitant]
  33. LEVAQUIN [Concomitant]
  34. PROBIATA [Concomitant]
  35. ACETAMINOPHEN [Concomitant]
  36. MAGNEVIST [Suspect]
     Indication: NUCLEAR MAGNETIC RESONANCE IMAGING BRAIN
     Dosage: UNK
     Dates: start: 20020205, end: 20020205
  37. OMNISCAN [Suspect]
     Indication: ABDOMEN SCAN
     Dosage: 20 ML, ONCE
     Route: 042
     Dates: start: 20010730, end: 20010730
  38. OPTIMARK [Suspect]
     Indication: IMAGING PROCEDURE
     Dosage: UNK
     Dates: start: 20040923, end: 20040923
  39. PROHANCE [Suspect]
     Indication: IMAGING PROCEDURE
  40. IMIPRAMINE [Concomitant]
     Dosage: 25 MG, QS
     Dates: start: 20020206
  41. ROBITUSSIN DM [DEXTROMETHORPHAN HYDROBROMIDE,ETHANOL,GUAIFENESIN] [Concomitant]
  42. ASTELIN [Concomitant]
  43. HYTRIN [Concomitant]
  44. OMNISCAN [Suspect]
     Dosage: UNK
     Dates: start: 20020815, end: 20020815
  45. MULTI-VITAMINS [Concomitant]
  46. MELPHALAN [Concomitant]
     Dosage: 25 MG, QD
  47. NEXIUM [Concomitant]
     Dosage: 40 MG, PRN
     Dates: start: 20020206
  48. K-DUR [Concomitant]
     Dosage: 30 MG, BID
  49. GADOLINIUM IN UNSPECIFIED DRUG [Suspect]
     Indication: NUCLEAR MAGNETIC RESONANCE IMAGING
  50. RHINOCORT [Concomitant]
  51. NEPHRO-VITE [VITAMINS NOS] [Concomitant]
  52. NEUPOGEN [Concomitant]
  53. IMIPRAMINE [Concomitant]
  54. OMNISCAN [Suspect]
     Indication: NUCLEAR MAGNETIC RESONANCE IMAGING BRAIN
     Dosage: UNK
     Dates: start: 19991206, end: 19991206
  55. OMNISCAN [Suspect]
     Indication: NUCLEAR MAGNETIC RESONANCE IMAGING
     Dosage: UNK
     Dates: start: 20010815, end: 20010815
  56. OMNISCAN [Suspect]
     Dosage: UNK
     Dates: start: 20100227, end: 20100227
  57. MULTIHANCE [Suspect]
     Indication: IMAGING PROCEDURE
  58. ANTIBIOTICS [Concomitant]
  59. EPOGEN [Concomitant]
  60. NEPHROVITE [VIT C,VIT H,B5,B12,B9,B3,B6,B2,B1 HCL] [Concomitant]
  61. METOLAZONE [Concomitant]
  62. ATIVAN [Concomitant]
  63. VICODIN [Concomitant]
  64. PHENERGAN [Concomitant]

REACTIONS (11)
  - SKIN INDURATION [None]
  - SKIN DISCOLOURATION [None]
  - JOINT RANGE OF MOTION DECREASED [None]
  - JOINT STIFFNESS [None]
  - RASH MACULO-PAPULAR [None]
  - NEPHROGENIC SYSTEMIC FIBROSIS [None]
  - DRY SKIN [None]
  - OEDEMA [None]
  - MOBILITY DECREASED [None]
  - OEDEMA PERIPHERAL [None]
  - PRURITUS GENERALISED [None]
